FAERS Safety Report 19810759 (Version 2)
Quarter: 2021Q3

REPORT INFORMATION
  Report Type: Spontaneous
  Country: SE (occurrence: SE)
  Receive Date: 20210909
  Receipt Date: 20210914
  Transmission Date: 20211014
  Serious: Yes (Hospitalization)
  Sender: FDA-Public Use
  Company Number: SE-OTSUKA-2021_030895

PATIENT
  Age: 17 Year
  Sex: Male
  Weight: 90 kg

DRUGS (2)
  1. ABILIFY [Suspect]
     Active Substance: ARIPIPRAZOLE
     Indication: TOURETTE^S DISORDER
     Dosage: 5 MG, QD
     Route: 048
     Dates: start: 20170115, end: 20170210
  2. ABILIFY [Suspect]
     Active Substance: ARIPIPRAZOLE
     Indication: HYPERHIDROSIS
     Dosage: UNK
     Route: 065

REACTIONS (4)
  - Product use in unapproved indication [Unknown]
  - Psychotic disorder [Recovering/Resolving]
  - Erythema [Recovered/Resolved with Sequelae]
  - Insomnia [Recovering/Resolving]

NARRATIVE: CASE EVENT DATE: 20170131
